FAERS Safety Report 14983731 (Version 1)
Quarter: 2018Q2

REPORT INFORMATION
  Report Type: Spontaneous
  Country: US (occurrence: US)
  Receive Date: 20180607
  Receipt Date: 20180607
  Transmission Date: 20180711
  Serious: No
  Sender: FDA-Public Use
  Company Number: US-GUERBET-US-20180063

PATIENT
  Sex: Female

DRUGS (2)
  1. DOTAREM [Suspect]
     Active Substance: GADOTERATE MEGLUMINE
     Indication: NUCLEAR MAGNETIC RESONANCE IMAGING
     Route: 065
  2. BENADRYL [Concomitant]
     Active Substance: DIPHENHYDRAMINE HYDROCHLORIDE
     Indication: URTICARIA
     Route: 065

REACTIONS (5)
  - Urticaria [Unknown]
  - Peripheral swelling [Unknown]
  - Swelling [Unknown]
  - Ear swelling [Unknown]
  - Swelling face [Unknown]
